FAERS Safety Report 21670408 (Version 2)
Quarter: 2022Q4

REPORT INFORMATION
  Report Type: Spontaneous
  Country: US (occurrence: US)
  Receive Date: 20221201
  Receipt Date: 20221215
  Transmission Date: 20230113
  Serious: Yes (Other)
  Sender: FDA-Public Use
  Company Number: US-TEVA-2022-US-2830413

PATIENT
  Age: 3 Decade
  Sex: Female

DRUGS (8)
  1. CISPLATIN [Suspect]
     Active Substance: CISPLATIN
     Indication: Osteosarcoma metastatic
     Route: 065
  2. IFOSFAMIDE [Suspect]
     Active Substance: IFOSFAMIDE
     Indication: Osteosarcoma metastatic
     Route: 065
  3. ADRIAMYCIN [Suspect]
     Active Substance: DOXORUBICIN HYDROCHLORIDE
     Indication: Osteosarcoma metastatic
     Route: 065
  4. PALBOCICLIB [Suspect]
     Active Substance: PALBOCICLIB
     Indication: Osteosarcoma metastatic
     Dosage: 75 MILLIGRAM DAILY; THREE WEEKS ON/ ONE WEEK OFF
     Route: 048
  5. PALBOCICLIB [Suspect]
     Active Substance: PALBOCICLIB
     Dosage: 75 MILLIGRAM DAILY; ONE WEEK ON/ONE WEEK OFF
     Route: 048
  6. LENVATINIB [Suspect]
     Active Substance: LENVATINIB
     Indication: Osteosarcoma metastatic
     Dosage: 10 MILLIGRAM DAILY;
     Route: 048
  7. LENVATINIB [Suspect]
     Active Substance: LENVATINIB
     Dosage: 14 MILLIGRAM DAILY;
     Route: 048
  8. IPILIMUMAB [Concomitant]
     Active Substance: IPILIMUMAB
     Indication: Osteosarcoma metastatic
     Route: 065

REACTIONS (3)
  - Drug ineffective [Unknown]
  - Thrombocytopenia [Unknown]
  - Mucosal inflammation [Unknown]
